FAERS Safety Report 9868199 (Version 1)
Quarter: 2014Q1

REPORT INFORMATION
  Report Type: Report from Study
  Country: US (occurrence: US)
  Receive Date: 20140204
  Receipt Date: 20140204
  Transmission Date: 20141002
  Serious: Yes (Death, Hospitalization)
  Sender: FDA-Public Use
  Company Number: PHEH2014US002196

PATIENT
  Age: 72 Year
  Sex: Male

DRUGS (4)
  1. TOBI [Suspect]
     Indication: PROPHYLAXIS
     Dosage: 300 MG, BID
     Route: 055
     Dates: start: 20100129
  2. TOBI [Suspect]
     Indication: PNEUMONIA
  3. MYCOPHENOLATE [Concomitant]
     Dosage: UNK UKN, UNK
  4. RAPAMUNE [Concomitant]
     Dosage: UNK UKN, UNK

REACTIONS (1)
  - Complications of transplanted lung [Fatal]
